FAERS Safety Report 10389854 (Version 2)
Quarter: 2014Q3

REPORT INFORMATION
  Report Type: Spontaneous
  Country: IT (occurrence: None)
  Receive Date: 20140813
  Receipt Date: 20140819
  Transmission Date: 20150326
  Serious: Yes (Hospitalization, Other)
  Sender: FDA-Public Use
  Company Number: NL01PV14.36876

PATIENT
  Age: 24 Year
  Sex: Female

DRUGS (1)
  1. ZOLPIDEM (ZOLPIDEM) TABLET [Suspect]
     Active Substance: ZOLPIDEM TARTRATE
     Indication: INSOMNIA
     Dosage: TOTAL
     Route: 048
     Dates: start: 20130331, end: 20130331

REACTIONS (4)
  - Sopor [None]
  - Toxicity to various agents [None]
  - Drug abuse [None]
  - Suicide attempt [None]

NARRATIVE: CASE EVENT DATE: 20130331
